FAERS Safety Report 10568467 (Version 1)
Quarter: 2014Q4

REPORT INFORMATION
  Report Type: Other
  Country: DE (occurrence: DE)
  Receive Date: 20141106
  Receipt Date: 20141106
  Transmission Date: 20150529
  Serious: Yes (Other)
  Sender: FDA-Public Use
  Company Number: DE-GLENMARK GENERICS INC.-2014GMK011791

PATIENT
  Age: 1 Day
  Sex: Male
  Weight: 2.38 kg

DRUGS (4)
  1. L-THYROXIN [Concomitant]
     Active Substance: LEVOTHYROXINE SODIUM
     Indication: HYPOTHYROIDISM
     Dosage: 75 ?G, OD
     Route: 064
     Dates: start: 20130324, end: 20131213
  2. ASPIRIN. [Concomitant]
     Active Substance: ASPIRIN
     Indication: PROPHYLAXIS OF ABORTION
     Dosage: UNK
     Route: 064
  3. TOPIRAMAT [Suspect]
     Active Substance: TOPIRAMATE
     Indication: ANXIETY DISORDER
     Dosage: 50 MG, OD
     Route: 064
     Dates: start: 20130324, end: 20131213
  4. VENLAFAXINE [Suspect]
     Active Substance: VENLAFAXINE HYDROCHLORIDE
     Indication: ANXIETY DISORDER
     Dosage: 150 MG, OD
     Route: 064
     Dates: start: 20130324, end: 20131213

REACTIONS (9)
  - Seizure [Unknown]
  - Thrombocytopenia neonatal [Recovered/Resolved]
  - Small for dates baby [Recovering/Resolving]
  - Feeding disorder neonatal [Recovering/Resolving]
  - Neonatal respiratory distress syndrome [Recovered/Resolved]
  - Atrial septal defect [Unknown]
  - Coagulation disorder neonatal [Recovered/Resolved]
  - Hypoglycaemia neonatal [Recovered/Resolved]
  - Neonatal hypotension [Recovered/Resolved]

NARRATIVE: CASE EVENT DATE: 20131213
